FAERS Safety Report 10068673 (Version 2)
Quarter: 2014Q2

REPORT INFORMATION
  Report Type: Report from Study
  Country: US (occurrence: US)
  Receive Date: 20140409
  Receipt Date: 20140523
  Transmission Date: 20141212
  Serious: Yes (Other)
  Sender: FDA-Public Use
  Company Number: PHEH2014US006829

PATIENT
  Age: 58 Year
  Sex: Male

DRUGS (2)
  1. GLEEVEC [Suspect]
     Indication: NEOPLASM MALIGNANT
     Dosage: 400 MG, DAILY
     Route: 048
     Dates: start: 20130611
  2. SONATA [Concomitant]
     Dosage: UNK UKN, UNK

REACTIONS (3)
  - Fall [Unknown]
  - Spinal fracture [Unknown]
  - Insomnia [Not Recovered/Not Resolved]
